FAERS Safety Report 10304750 (Version 1)
Quarter: 2014Q3

REPORT INFORMATION
  Report Type: Spontaneous
  Country: US (occurrence: None)
  Receive Date: 20140710
  Receipt Date: 20140710
  Transmission Date: 20150326
  Serious: Yes (Hospitalization)
  Sender: FDA-Public Use
  Company Number: None

PATIENT
  Age: 77 Year
  Sex: Male
  Weight: 100.5 kg

DRUGS (2)
  1. CARBOPLATIN. [Suspect]
     Active Substance: CARBOPLATIN
     Dosage: ONCE PATIENT RE-STARTS TREATMENT, HE WILL RECEIVE A DOSE LEVEL-1 REDUCTION PER PROTOCOL
     Dates: end: 20140402
  2. TAXOL [Suspect]
     Active Substance: PACLITAXEL
     Dosage: ONCE PATIENT RE-STARTS TREATMENT, HE WILL RECEIVE A DOSE LEVEL 1 REDUCTION PER PROTOCOL?
     Dates: end: 20140402

REACTIONS (9)
  - Loss of consciousness [None]
  - Hypertension [None]
  - Neutropenia [None]
  - White blood cell count decreased [None]
  - Atrial fibrillation [None]
  - Hypovolaemia [None]
  - Renal failure acute [None]
  - Malnutrition [None]
  - Septic shock [None]

NARRATIVE: CASE EVENT DATE: 20140429
